FAERS Safety Report 14553012 (Version 3)
Quarter: 2018Q1

REPORT INFORMATION
  Report Type: Spontaneous
  Country: JP (occurrence: JP)
  Receive Date: 20180220
  Receipt Date: 20180306
  Transmission Date: 20180509
  Serious: Yes (Other)
  Sender: FDA-Public Use
  Company Number: JP-UCBSA-2018007185

PATIENT
  Age: 8 Month
  Sex: Male

DRUGS (3)
  1. LEVOCETIRIZINE HYDROCHLORIDE [Suspect]
     Active Substance: LEVOCETIRIZINE HYDROCHLORIDE
     Indication: ECZEMA INFANTILE
     Dosage: 2.5 ML, ONCE DAILY (QD)
     Route: 048
     Dates: start: 20180206, end: 20180208
  2. BESOFTEN [Concomitant]
     Active Substance: PENTOSAN POLYSULFATE SODIUM
     Indication: ECZEMA INFANTILE
     Dosage: UNK, ONCE DAILY (QD) LOTION
     Dates: start: 20180206, end: 20180208
  3. ABOCOAT [Concomitant]
     Indication: ECZEMA INFANTILE
     Dosage: UNK
     Dates: start: 20180206, end: 20180208

REACTIONS (2)
  - Haematochezia [Recovered/Resolved]
  - Diarrhoea [Recovered/Resolved]

NARRATIVE: CASE EVENT DATE: 20180208
